FAERS Safety Report 8863072 (Version 1)
Quarter: 2012Q4

REPORT INFORMATION
  Report Type: 
  Country: FR (occurrence: FR)
  Receive Date: 20121026
  Receipt Date: 20121026
  Transmission Date: 20130627
  Serious: Yes (Death, Hospitalization)
  Sender: FDA-Public Use
  Company Number: FR-SANOFI-AVENTIS-2012SA075643

PATIENT
  Age: 80 Year
  Sex: Female

DRUGS (13)
  1. XATRAL [Suspect]
     Indication: URINARY RETENTION
     Route: 048
     Dates: end: 20120814
  2. ILOPROST [Suspect]
     Indication: ISCHEMIA
     Route: 042
     Dates: start: 20120816, end: 20120820
  3. ARICEPT [Suspect]
     Indication: ALZHEIMER^S DISEASE
     Route: 048
     Dates: end: 20120903
  4. PREVISCAN [Suspect]
     Indication: THROMBOSIS PROPHYLAXIS
     Route: 048
     Dates: start: 20120814, end: 20120822
  5. SEROPLEX [Suspect]
     Indication: DEPRESSIVE EPISODE
     Route: 048
     Dates: start: 20120824, end: 20120826
  6. FLUCONAZOLE [Suspect]
     Indication: INFECTION
     Route: 048
     Dates: end: 20120814
  7. VANCOMYCINE [Concomitant]
     Dates: end: 20120820
  8. DRIPTANE [Concomitant]
     Dates: end: 20120824
  9. PARACETAMOL [Concomitant]
     Dates: end: 20120904
  10. INEXIUM [Concomitant]
     Dates: end: 20120904
  11. RUBOZINC [Concomitant]
     Dates: end: 20120902
  12. DIFFU K [Concomitant]
  13. ERGOCALCIFEROL [Concomitant]

REACTIONS (1)
  - Hepatitis cholestatic [Fatal]
